FAERS Safety Report 4850540-6 (Version None)
Quarter: 2005Q4

REPORT INFORMATION
  Report Type: 
  Country: None (occurrence: None)
  Receive Date: 20051212
  Receipt Date: 20051024
  Transmission Date: 20060501
  Serious: Yes (Other)
  Sender: FDA-Public Use
  Company Number: JP-SOLVAY-00305003525

PATIENT
  Age: 10251 Day
  Sex: Female

DRUGS (12)
  1. PAXIL [Concomitant]
     Indication: PANIC DISORDER
     Dosage: DAILY DOSE: 30 MILLIGRAM(S) (10 + 20 MG)
     Route: 048
     Dates: start: 20050131, end: 20050206
  2. PAXIL [Concomitant]
     Dosage: DAILY DOSE: 40 MILLIGRAM(S)
     Route: 048
     Dates: start: 20050207
  3. LUVOX [Suspect]
     Indication: PANIC DISORDER
     Dosage: DAILY DOSE: 50 MILLIGRAM(S)
     Route: 048
     Dates: start: 20050307, end: 20050308
  4. ALPRAZOLAM [Concomitant]
     Indication: PANIC DISORDER
     Dosage: DAILY DOSE: 1.2 MILLIGRAM(S)
     Route: 048
     Dates: start: 20050131, end: 20050206
  5. ALPRAZOLAM [Concomitant]
     Dosage: DAILY DOSE: 2.4 MILLIGRAM(S)
     Route: 048
     Dates: start: 20050207, end: 20050101
  6. ALPRAZOLAM [Concomitant]
     Dosage: DAILY DOSE:  UNKNOWN
     Route: 048
     Dates: start: 20050101
  7. MEILAX [Concomitant]
     Indication: PANIC DISORDER
     Dosage: DAILY DOSE: 2 MILLIGRAM(S)
     Route: 048
     Dates: start: 20050131
  8. MYSLEE [Concomitant]
     Indication: INSOMNIA
     Dosage: DAILY DOSE: 5 MILLIGRAM(S)
     Route: 048
     Dates: start: 20050131
  9. HALCION [Concomitant]
     Indication: INSOMNIA
     Dosage: DAILY DOSE: .125 MILLIGRAM(S)
     Route: 048
     Dates: start: 20050207
  10. RHYTHMY [Concomitant]
     Indication: INSOMNIA
     Dosage: DAILY DOSE: 1 MILLIGRAM(S)
     Route: 048
     Dates: start: 20050221
  11. LANDSEN [Concomitant]
     Indication: PANIC DISORDER
     Dosage: DAILY DOSE: .5 MILLIGRAM(S)
     Route: 048
     Dates: start: 20050221, end: 20050308
  12. HANGE-KOBOKU-TO [Concomitant]
     Indication: PANIC DISORDER
     Dosage: DAILY DOSE: 7.5 GRAM(S)
     Route: 048
     Dates: start: 20050307

REACTIONS (3)
  - DISSOCIATIVE IDENTITY DISORDER [None]
  - PALLOR [None]
  - TREMOR [None]
